FAERS Safety Report 8295391-8 (Version None)
Quarter: 2012Q2

REPORT INFORMATION
  Report Type: 
  Country: None (occurrence: None)
  Receive Date: 20120416
  Receipt Date: 20120402
  Transmission Date: 20120825
  Serious: Yes (Hospitalization)
  Sender: FDA-Public Use
  Company Number: 1253153

PATIENT
  Age: 59 Year
  Sex: Male

DRUGS (5)
  1. LINEZOLID [Concomitant]
  2. VANCOMYCIN HYDROCHLORIDE [Concomitant]
  3. CEFEPIME HYDROCHLORIDE [Suspect]
     Indication: DISEASE RECURRENCE
     Dosage: NOT REPORTED, UNKNOWN, UNKNOWN
  4. CEFEPIME HYDROCHLORIDE [Suspect]
     Indication: LOCALISED INFECTION
     Dosage: NOT REPORTED, UNKNOWN, UNKNOWN
  5. PIPERACILLIN AND TAZOBACTAM [Concomitant]

REACTIONS (10)
  - ENTEROCOCCUS TEST POSITIVE [None]
  - ENCEPHALOPATHY [None]
  - POSTOPERATIVE WOUND INFECTION [None]
  - HAEMODIALYSIS [None]
  - DRUG RASH WITH EOSINOPHILIA AND SYSTEMIC SYMPTOMS [None]
  - ACIDOSIS [None]
  - RENAL FAILURE ACUTE [None]
  - HYPOTENSION [None]
  - TUBULOINTERSTITIAL NEPHRITIS [None]
  - TOXICITY TO VARIOUS AGENTS [None]
